FAERS Safety Report 17120103 (Version 1)
Quarter: 2019Q4

REPORT INFORMATION
  Report Type: Report from Study
  Country: IE (occurrence: IE)
  Receive Date: 20191206
  Receipt Date: 20191206
  Transmission Date: 20200122
  Serious: Yes (Hospitalization, Other)
  Sender: FDA-Public Use
  Company Number: IE-BRISTOL-MYERS SQUIBB COMPANY-BMS-2019-079286

PATIENT
  Age: 49 Year
  Sex: Female

DRUGS (2)
  1. IPILIMUMAB [Suspect]
     Active Substance: IPILIMUMAB
     Indication: METASTATIC MALIGNANT MELANOMA
     Dosage: UNK
     Route: 065
     Dates: start: 20190801
  2. NIVOLUMAB [Suspect]
     Active Substance: NIVOLUMAB
     Indication: METASTATIC MALIGNANT MELANOMA
     Dosage: UNK
     Route: 065
     Dates: start: 20190801

REACTIONS (14)
  - Viral infection [Recovering/Resolving]
  - Nail disorder [Unknown]
  - Liver function test abnormal [Unknown]
  - Night sweats [Recovered/Resolved]
  - Restless legs syndrome [Recovering/Resolving]
  - Skin discolouration [Recovering/Resolving]
  - Nausea [Recovered/Resolved]
  - Mental impairment [Unknown]
  - Urticaria [Recovered/Resolved]
  - Rash pruritic [Recovering/Resolving]
  - Retching [Recovering/Resolving]
  - Vomiting [Recovered/Resolved]
  - Decreased appetite [Not Recovered/Not Resolved]
  - Cough [Recovering/Resolving]

NARRATIVE: CASE EVENT DATE: 20191127
